FAERS Safety Report 18539311 (Version 1)
Quarter: 2020Q4

REPORT INFORMATION
  Report Type: Spontaneous
  Country: US (occurrence: US)
  Receive Date: 20201123
  Receipt Date: 20201123
  Transmission Date: 20210114
  Serious: No
  Sender: FDA-Public Use
  Company Number: None

PATIENT
  Age: 2 Year
  Sex: Female
  Weight: 13.5 kg

DRUGS (4)
  1. UPSPRING VITAMIN D3 DROPS [Concomitant]
  2. SMARTYPANTS MULTI-VITAMIN TODDLER FORMULA [Concomitant]
  3. GUTPRO INFANT PROBIOTICS [Concomitant]
  4. MIRALAX [Suspect]
     Active Substance: POLYETHYLENE GLYCOL 3350
     Indication: CONSTIPATION
     Dosage: ?          QUANTITY:4 CAPS;?
     Route: 048
     Dates: start: 20200920, end: 20201021

REACTIONS (5)
  - Dizziness [None]
  - Crying [None]
  - Coordination abnormal [None]
  - Panic reaction [None]
  - Anger [None]

NARRATIVE: CASE EVENT DATE: 20200923
